FAERS Safety Report 9802142 (Version 5)
Quarter: 2018Q4

REPORT INFORMATION
  Report Type: Spontaneous
  Country: US (occurrence: US)
  Receive Date: 20140107
  Receipt Date: 20181220
  Transmission Date: 20190205
  Serious: Yes (Other)
  Sender: FDA-Public Use
  Company Number: US-TEVA-454767USA

PATIENT
  Age: 35 Year
  Sex: Female
  Weight: 58.57 kg

DRUGS (1)
  1. PARAGARD T 380A [Suspect]
     Active Substance: COPPER
     Indication: CONTRACEPTION
     Route: 015
     Dates: start: 20120608, end: 201401

REACTIONS (4)
  - Maternal exposure during pregnancy [Unknown]
  - Device expulsion [Recovered/Resolved]
  - Abortion induced [Recovered/Resolved]
  - Drug ineffective [Recovered/Resolved]

NARRATIVE: CASE EVENT DATE: 20131227
